FAERS Safety Report 13588729 (Version 1)
Quarter: 2017Q2

REPORT INFORMATION
  Report Type: Spontaneous
  Country: CA (occurrence: CA)
  Receive Date: 20170529
  Receipt Date: 20170529
  Transmission Date: 20170830
  Serious: Yes (Hospitalization, Other)
  Sender: FDA-Public Use
  Company Number: CA-BRISTOL-MYERS SQUIBB COMPANY-BMS-2017-044712

PATIENT
  Sex: Female

DRUGS (1)
  1. COUMADIN [Suspect]
     Active Substance: WARFARIN SODIUM
     Indication: THROMBOSIS
     Dosage: 5 MG, QD
     Route: 048
     Dates: start: 1967, end: 201611

REACTIONS (4)
  - Pneumonia [Unknown]
  - Ovarian cyst [Unknown]
  - Thrombosis [Unknown]
  - International normalised ratio abnormal [Unknown]
